FAERS Safety Report 4276668-X (Version None)
Quarter: 2004Q1

REPORT INFORMATION
  Report Type: 
  Country: None (occurrence: None)
  Receive Date: 20040120
  Receipt Date: 20031201
  Transmission Date: 20041129
  Serious: Yes (Death)
  Sender: FDA-Public Use
  Company Number: RENA-10718

PATIENT
  Age: 72 Year
  Sex: Female
  Weight: 60 kg

DRUGS (4)
  1. RENAGEL [Suspect]
     Indication: HYPERPHOSPHATAEMIA
     Dosage: 0.8 G QD PO
     Route: 048
     Dates: start: 20031105, end: 20031109
  2. CORDARONE [Concomitant]
  3. CALTRATE [Concomitant]
  4. VITAMIN D [Concomitant]

REACTIONS (14)
  - ANOREXIA [None]
  - BRAIN OEDEMA [None]
  - CARDIAC MURMUR [None]
  - CEREBRAL HAEMATOMA [None]
  - COMA [None]
  - CONVULSION [None]
  - DIARRHOEA [None]
  - FATIGUE [None]
  - HEMIPLEGIA [None]
  - HYPOTONIA [None]
  - MYDRIASIS [None]
  - RALES [None]
  - RESPIRATORY DISORDER [None]
  - VOMITING [None]
